FAERS Safety Report 6562404-0 (Version None)
Quarter: 2010Q1

REPORT INFORMATION
  Report Type: 
  Country: None (occurrence: None)
  Receive Date: 20100130
  Receipt Date: 20091109
  Transmission Date: 20100710
  Serious: No
  Sender: FDA-Public Use
  Company Number: US-ABBOTT-09P-163-0608122-00

PATIENT
  Sex: Female
  Weight: 66.284 kg

DRUGS (9)
  1. HUMIRA [Suspect]
     Indication: RHEUMATOID ARTHRITIS
     Route: 058
     Dates: start: 20090601, end: 20090924
  2. SYMPONI [Concomitant]
     Indication: RHEUMATOID ARTHRITIS
  3. TESTOSTERONE [Concomitant]
     Indication: DRUG USE FOR UNKNOWN INDICATION
     Dosage: VAGINAL CREAM
  4. FOSAMAX [Concomitant]
     Indication: DRUG USE FOR UNKNOWN INDICATION
  5. PREDNISONE [Concomitant]
     Indication: DRUG USE FOR UNKNOWN INDICATION
  6. DIAZEPAM [Concomitant]
     Indication: DRUG USE FOR UNKNOWN INDICATION
  7. TYLENOL-500 [Concomitant]
     Indication: DRUG USE FOR UNKNOWN INDICATION
  8. AMBIEN [Concomitant]
     Indication: DRUG USE FOR UNKNOWN INDICATION
  9. ESTRING [Concomitant]
     Indication: OESTROGEN REPLACEMENT THERAPY

REACTIONS (2)
  - INJECTION SITE PAIN [None]
  - PAIN [None]
